FAERS Safety Report 4705019-9 (Version None)
Quarter: 2005Q3

REPORT INFORMATION
  Report Type: 
  Country: None (occurrence: None)
  Receive Date: 20050701
  Receipt Date: 20050624
  Transmission Date: 20060218
  Serious: Yes (Hospitalization)
  Sender: FDA-Public Use
  Company Number: JP-JNJFOC-20050305361

PATIENT
  Sex: Female
  Weight: 45.1 kg

DRUGS (66)
  1. REMICADE [Suspect]
     Indication: CROHN'S DISEASE
     Route: 042
  2. ELENTAL [Concomitant]
     Route: 049
  3. ELENTAL [Concomitant]
     Indication: CROHN'S DISEASE
     Route: 049
  4. RACOL [Concomitant]
     Indication: CROHN'S DISEASE
     Route: 049
  5. YODEL S [Concomitant]
     Route: 049
  6. VOLTAREN [Concomitant]
     Dosage: AS REQUIRED
  7. VOLTAREN [Concomitant]
     Indication: BACK PAIN
  8. ENSURE [Concomitant]
     Route: 049
  9. ENSURE [Concomitant]
     Route: 049
  10. ENSURE [Concomitant]
     Indication: CROHN'S DISEASE
     Route: 049
  11. LOXONIN [Concomitant]
     Route: 049
  12. LOXONIN [Concomitant]
     Indication: BACK PAIN
     Route: 049
  13. ISODINE GARGLE [Concomitant]
  14. GASTER [Concomitant]
     Route: 049
  15. ALTAT [Concomitant]
     Route: 049
  16. SELBEX [Concomitant]
     Indication: GASTRITIS
     Route: 049
  17. SELBEX [Concomitant]
     Route: 049
  18. NERIPROCT [Concomitant]
  19. NERIPROCT [Concomitant]
  20. DERMOVATE [Concomitant]
     Indication: ECZEMA
  21. ANDERM [Concomitant]
  22. BISOLVON [Concomitant]
  23. VENETLIN [Concomitant]
  24. PL [Concomitant]
     Indication: BRONCHITIS
     Route: 049
  25. RESTAMIN [Concomitant]
     Route: 049
  26. NASEA [Concomitant]
     Route: 049
  27. LAC B [Concomitant]
     Route: 049
  28. CRAVIT [Concomitant]
     Indication: BRONCHITIS
     Dosage: TABLET
     Route: 049
  29. VISCORIN [Concomitant]
     Route: 042
  30. POLARAMINE [Concomitant]
     Route: 042
  31. PRIMPERAN INJ [Concomitant]
     Route: 042
  32. ASPARA K [Concomitant]
     Route: 042
  33. DECADRON [Concomitant]
     Route: 042
  34. CEFAMEZIN [Concomitant]
     Route: 042
  35. NEU-UP [Concomitant]
     Route: 058
  36. STRONGER NEO-MINOPHAGEN C [Concomitant]
     Route: 042
  37. STRONGER NEO-MINOPHAGEN C [Concomitant]
     Route: 042
  38. STRONGER NEO-MINOPHAGEN C [Concomitant]
     Route: 042
  39. PANTHENOL [Concomitant]
     Route: 042
  40. ROPION [Concomitant]
     Route: 042
  41. FLUMARIN [Concomitant]
     Route: 042
  42. BLUTAL [Concomitant]
     Route: 042
  43. BLUTAL [Concomitant]
     Route: 042
  44. KYTRIL [Concomitant]
     Route: 042
  45. MAXIPIME [Concomitant]
     Route: 042
  46. BIOFERMIN-R [Concomitant]
     Route: 049
  47. BIOFERMIN-R [Concomitant]
     Route: 049
  48. BIOFERMIN-R [Concomitant]
     Indication: CROHN'S DISEASE
     Route: 049
  49. POSTERISAN FORTE [Concomitant]
  50. POSTERISAN FORTE [Concomitant]
  51. POSTERISAN FORTE [Concomitant]
  52. POSTERISAN FORTE [Concomitant]
  53. POSTERISAN FORTE [Concomitant]
  54. FERROMIA [Concomitant]
     Route: 049
  55. MOHRUS TAPE [Concomitant]
     Indication: BACK PAIN
     Dosage: AS REQUIRED
  56. OMEPRAL [Concomitant]
     Indication: GASTRIC ULCER
     Route: 049
  57. BUFFERIN [Concomitant]
     Route: 049
  58. BUFFERIN [Concomitant]
     Route: 049
  59. BUFFERIN [Concomitant]
     Indication: HEADACHE
     Route: 049
  60. KENACORT-A [Concomitant]
  61. KENACORT-A [Concomitant]
  62. ROCAIN [Concomitant]
  63. TPN [Concomitant]
  64. ENTERAL NUTRITION [Concomitant]
  65. PREDONINE [Concomitant]
     Indication: CROHN'S DISEASE
  66. PANTOL [Concomitant]

REACTIONS (5)
  - ABDOMINAL ADHESIONS [None]
  - DRUG INEFFECTIVE [None]
  - IRON DEFICIENCY [None]
  - OVARIAN CANCER [None]
  - PYODERMA GANGRENOSUM [None]
